FAERS Safety Report 21622418 (Version 2)
Quarter: 2023Q1

REPORT INFORMATION
  Report Type: Report from Study
  Country: CH (occurrence: CH)
  Receive Date: 20221121
  Receipt Date: 20230119
  Transmission Date: 20230418
  Serious: Yes (Hospitalization, Other)
  Sender: FDA-Public Use
  Company Number: CH-002147023-NVSC2022CH258804

PATIENT
  Age: 24 Year
  Sex: Male
  Weight: 85 kg

DRUGS (26)
  1. NELARABINE [Suspect]
     Active Substance: NELARABINE
     Indication: Acute lymphocytic leukaemia
     Dosage: NO TREATMENT
     Route: 065
  2. NELARABINE [Suspect]
     Active Substance: NELARABINE
     Dosage: 3000 MG, CYCLE 2 D1, 3, 5
     Route: 042
     Dates: start: 20190917, end: 20190921
  3. PREDNISONE [Suspect]
     Active Substance: PREDNISONE
     Indication: Acute lymphocytic leukaemia
     Dosage: NO TREATMENT
     Route: 065
  4. PREDNISONE [Suspect]
     Active Substance: PREDNISONE
     Dosage: UNK
     Route: 065
     Dates: start: 20190820, end: 20190923
  5. PREDNISONE [Suspect]
     Active Substance: PREDNISONE
     Dosage: 80 MG, CYCLE 2 D1-7
     Route: 048
     Dates: start: 20190917, end: 20190923
  6. PREDNISONE [Suspect]
     Active Substance: PREDNISONE
     Dosage: 75 MG, CYCLE 3 D1-7
     Route: 048
     Dates: start: 20191015, end: 20191021
  7. MERCAPTOPURINE [Suspect]
     Active Substance: MERCAPTOPURINE
     Indication: Acute lymphocytic leukaemia
     Dosage: NO TREATMENT
     Route: 065
  8. MERCAPTOPURINE [Suspect]
     Active Substance: MERCAPTOPURINE
     Dosage: 125 MG, CYCLE 2 D1-28
     Route: 048
     Dates: start: 20190820, end: 20190917
  9. MERCAPTOPURINE [Suspect]
     Active Substance: MERCAPTOPURINE
     Dosage: 22.5 MG, CYCLE 3 D1-28
     Route: 048
     Dates: start: 20191015, end: 20191108
  10. MERCAPTOPURINE [Suspect]
     Active Substance: MERCAPTOPURINE
     Dosage: UNK
     Route: 048
     Dates: start: 20191119
  11. METHOTREXATE [Suspect]
     Active Substance: METHOTREXATE
     Indication: Acute lymphocytic leukaemia
     Dosage: NO TREATMENT
     Route: 065
  12. METHOTREXATE [Suspect]
     Active Substance: METHOTREXATE
     Dosage: 50 MG, CYCLE 2 D1, 8, 15, 22
     Route: 048
     Dates: start: 20190820, end: 20190917
  13. METHOTREXATE [Suspect]
     Active Substance: METHOTREXATE
     Dosage: 50 MG, CYCLE 3 D1, 8, 15, 22
     Route: 048
     Dates: start: 20191015, end: 20191108
  14. BACTRIM [Concomitant]
     Active Substance: SULFAMETHOXAZOLE\TRIMETHOPRIM
     Indication: Prophylaxis
     Dosage: 3XWEEKLY
     Route: 048
     Dates: start: 20181119
  15. VALTREX [Concomitant]
     Active Substance: VALACYCLOVIR HYDROCHLORIDE
     Indication: Herpes zoster
     Dosage: UNK
     Route: 048
     Dates: start: 20181228, end: 20200721
  16. LAMIVUDINE [Concomitant]
     Active Substance: LAMIVUDINE
     Indication: Chronic hepatitis B
     Dosage: 100 MG
     Route: 048
     Dates: start: 20181228, end: 20220113
  17. ESOMEPRAZOLE [Concomitant]
     Active Substance: ESOMEPRAZOLE
     Indication: Prophylaxis
     Dosage: 20 MG
     Route: 048
     Dates: start: 20181228
  18. FRAGMIN [Concomitant]
     Active Substance: DALTEPARIN SODIUM
     Indication: Anticoagulant therapy
     Dosage: 5000 IU
     Route: 058
     Dates: start: 20181228, end: 20200704
  19. CIPROFLOXACIN [Concomitant]
     Active Substance: CIPROFLOXACIN
     Indication: Infection
     Dosage: 1000 MG
     Route: 048
     Dates: start: 20181221, end: 20181227
  20. PASPERTIN [Concomitant]
     Indication: Nausea
     Dosage: 10 MG
     Route: 048
     Dates: start: 20181228, end: 20190617
  21. DAFALGAN [Concomitant]
     Active Substance: ACETAMINOPHEN
     Indication: Pain
     Dosage: UNK
     Route: 048
     Dates: start: 20190123
  22. LORAZEPAM [Concomitant]
     Active Substance: LORAZEPAM
     Indication: Nausea
     Dosage: 1 MG
     Route: 065
     Dates: start: 20181228, end: 20190617
  23. ZOLPIDEM [Concomitant]
     Active Substance: ZOLPIDEM TARTRATE
     Indication: Insomnia
     Dosage: 10 MG
     Route: 048
     Dates: start: 20200505, end: 20220410
  24. XYLOCAINE [Concomitant]
     Active Substance: LIDOCAINE HYDROCHLORIDE
     Indication: Anal fissure
     Dosage: 6 MG
     Route: 062
     Dates: start: 20201202
  25. TRANSIPEG [Concomitant]
     Indication: Anal fissure
     Dosage: 1 MG
     Route: 048
     Dates: start: 20201202, end: 20220309
  26. NIFEDIPINE [Concomitant]
     Active Substance: NIFEDIPINE
     Indication: Anal fissure
     Dosage: 0.8 MG
     Route: 062
     Dates: start: 20210105

REACTIONS (6)
  - Pancreatitis [Recovered/Resolved]
  - Cytomegalovirus infection reactivation [Recovered/Resolved]
  - Cytomegalovirus infection reactivation [Recovered/Resolved]
  - Febrile neutropenia [Recovered/Resolved]
  - Febrile neutropenia [Recovered/Resolved]
  - Febrile neutropenia [Recovered/Resolved]

NARRATIVE: CASE EVENT DATE: 20190513
